FAERS Safety Report 6651179-2 (Version None)
Quarter: 2010Q1

REPORT INFORMATION
  Report Type: 
  Country: None (occurrence: None)
  Receive Date: 20100325
  Receipt Date: 20100317
  Transmission Date: 20100710
  Serious: Yes (Hospitalization)
  Sender: FDA-Public Use
  Company Number: FR-KINGPHARMUSA00001-K201000319

PATIENT
  Age: 60 Year
  Sex: Female

DRUGS (6)
  1. ALTACE [Suspect]
     Dosage: 1.25 MG, QD
     Route: 048
     Dates: start: 20090925, end: 20091005
  2. ALTACE [Suspect]
     Dosage: 1.25 MG, BID
     Route: 048
     Dates: start: 20091005, end: 20091105
  3. PREDNISOLONE [Concomitant]
     Dosage: UNK
     Dates: start: 20090929
  4. FLUTICASONE PROPIONATE W/SALMETEROL [Concomitant]
  5. TIOTROPIUM BROMIDE [Concomitant]
  6. SALBUTAMOL [Concomitant]

REACTIONS (2)
  - CHRONIC OBSTRUCTIVE PULMONARY DISEASE [None]
  - COUGH [None]
